FAERS Safety Report 16008622 (Version 1)
Quarter: 2019Q1

REPORT INFORMATION
  Report Type: Spontaneous
  Country: GB (occurrence: GB)
  Receive Date: 20190226
  Receipt Date: 20190226
  Transmission Date: 20190418
  Serious: Yes (Other)
  Sender: FDA-Public Use
  Company Number: PHHY2019GB042206

PATIENT
  Age: 88 Year
  Sex: Female

DRUGS (1)
  1. LORAZEPAM. [Suspect]
     Active Substance: LORAZEPAM
     Indication: PRODUCT USED FOR UNKNOWN INDICATION
     Dosage: 2 MG, UNK
     Route: 065

REACTIONS (11)
  - Pneumonia aspiration [Unknown]
  - Vomiting [Unknown]
  - Somnolence [Unknown]
  - C-reactive protein increased [Unknown]
  - Neutrophil count increased [Unknown]
  - Tachycardia [Unknown]
  - Chest discomfort [Unknown]
  - Hypoxia [Unknown]
  - Delirium [Unknown]
  - Contraindicated product prescribed [Unknown]
  - White blood cell count increased [Unknown]

NARRATIVE: CASE EVENT DATE: 20171012
